FAERS Safety Report 7879301-0 (Version None)
Quarter: 2011Q4

REPORT INFORMATION
  Report Type: 
  Country: None (occurrence: None)
  Receive Date: 20111101
  Receipt Date: 20111028
  Transmission Date: 20120403
  Serious: Yes (Other)
  Sender: FDA-Public Use
  Company Number: DE-PFIZER INC-2011263622

PATIENT
  Age: 46 Year
  Sex: Female

DRUGS (1)
  1. VARENICLINE TARTRATE [Suspect]
     Dosage: UNK

REACTIONS (5)
  - PALPITATIONS [None]
  - EYE SWELLING [None]
  - NAUSEA [None]
  - OEDEMA [None]
  - ARRHYTHMIA [None]
